FAERS Safety Report 13679976 (Version 3)
Quarter: 2019Q2

REPORT INFORMATION
  Report Type: Spontaneous
  Country: US (occurrence: US)
  Receive Date: 20170622
  Receipt Date: 20190506
  Transmission Date: 20190711
  Serious: No
  Sender: FDA-Public Use
  Company Number: US-PFIZER INC-2017274411

PATIENT
  Age: 51 Year
  Sex: Female

DRUGS (1)
  1. XELJANZ XR [Suspect]
     Active Substance: TOFACITINIB CITRATE
     Indication: RHEUMATOID ARTHRITIS
     Dosage: 11 MG, DAILY
     Route: 048

REACTIONS (5)
  - Hand deformity [Unknown]
  - Pain in extremity [Recovering/Resolving]
  - Therapeutic product effect incomplete [Unknown]
  - Dyspepsia [Unknown]
  - Arthralgia [Recovering/Resolving]
